FAERS Safety Report 4438760-6 (Version None)
Quarter: 2004Q3

REPORT INFORMATION
  Report Type: 
  Country: None (occurrence: None)
  Receive Date: 20040830
  Receipt Date: 20040817
  Transmission Date: 20050211
  Serious: Yes (Death)
  Sender: FDA-Public Use
  Company Number: 20040800370

PATIENT
  Sex: Female

DRUGS (2)
  1. BREVIBLOC [Suspect]
     Indication: SUPRAVENTRICULAR TACHYCARDIA
     Dosage: 500 MG/KG/MIN DAILY IV
     Route: 042
  2. BREVIBLOC [Suspect]
     Indication: SUPRAVENTRICULAR TACHYCARDIA
     Dosage: 550 MG/KG/MIN DAILY IV
     Route: 042

REACTIONS (4)
  - CARDIO-RESPIRATORY ARREST [None]
  - HEART RATE INCREASED [None]
  - MEDICATION ERROR [None]
  - OVERDOSE [None]
